FAERS Safety Report 5564136-4 (Version None)
Quarter: 2007Q4

REPORT INFORMATION
  Report Type: 
  Country: None (occurrence: None)
  Receive Date: 20071217
  Receipt Date: 20071206
  Transmission Date: 20080405
  Serious: Yes (Life-Threatening, Hospitalization, Other)
  Sender: FDA-Public Use
  Company Number: US-PFIZER INC-2007102858

PATIENT
  Sex: Female
  Weight: 54 kg

DRUGS (6)
  1. DEPO-PROVERA SUSPENSION/INJ [Suspect]
     Indication: CONTRACEPTION
     Dates: start: 20060101, end: 20060101
  2. NAPROXEN [Concomitant]
  3. ADVAIR DISKUS 100/50 [Concomitant]
     Indication: ASTHMA
  4. ADVAIR DISKUS 100/50 [Concomitant]
     Indication: BRONCHITIS
  5. ALBUTEROL [Concomitant]
     Indication: ASTHMA
  6. ALBUTEROL [Concomitant]
     Indication: BRONCHITIS

REACTIONS (5)
  - ASTHMA [None]
  - BRONCHITIS [None]
  - PALPITATIONS [None]
  - SOMNOLENCE [None]
  - UTERINE CANCER [None]
